FAERS Safety Report 7309208-9 (Version None)
Quarter: 2011Q1

REPORT INFORMATION
  Report Type: 
  Country: None (occurrence: None)
  Receive Date: 20110223
  Receipt Date: 20110215
  Transmission Date: 20110831
  Serious: Yes (Hospitalization, Other)
  Sender: FDA-Public Use
  Company Number: US-AMGEN-KDL324578

PATIENT
  Age: 80 Year
  Sex: Female

DRUGS (2)
  1. ENBREL [Suspect]
     Indication: RHEUMATOID ARTHRITIS
     Route: 058
     Dates: start: 20090101, end: 20100901
  2. METHOTREXATE [Concomitant]
     Dosage: 12.5 MG, QWK
     Route: 048

REACTIONS (5)
  - DYSKINESIA [None]
  - EYE INFECTION [None]
  - HEADACHE [None]
  - GENERAL PHYSICAL HEALTH DETERIORATION [None]
  - TREMOR [None]
